FAERS Safety Report 16772628 (Version 1)
Quarter: 2019Q3

REPORT INFORMATION
  Report Type: Spontaneous
  Country: CN (occurrence: CN)
  Receive Date: 20190904
  Receipt Date: 20190904
  Transmission Date: 20191005
  Serious: Yes (Hospitalization, Other)
  Sender: FDA-Public Use
  Company Number: CN-BAXTER-2019BAX017089

PATIENT
  Age: 59 Year
  Sex: Female
  Weight: 45 kg

DRUGS (16)
  1. ENDOXAN [Suspect]
     Active Substance: CYCLOPHOSPHAMIDE
     Dosage: DOSE RE-INTRODUCED, ENDOXAN + 0.9% NS
     Route: 041
  2. 0.9% SODIUM CHLORIDE INJECTION [Suspect]
     Active Substance: SODIUM CHLORIDE
     Dosage: DOSE RE-INTRODUCED, PIRARUBICIN HYDROCHLORIDE + 0.9% NS
     Route: 041
  3. PIRARUBICIN HYDROCHLORIDE [Suspect]
     Active Substance: PIRARUBICIN HYDROCHLORIDE
     Dosage: DOSE RE-INTRODUCED, PIRARUBICIN HYDROCHLORIDE + 0.9% NS
     Route: 041
  4. VINCRISTINE SULFATE. [Suspect]
     Active Substance: VINCRISTINE SULFATE
     Dosage: DOSE RE-INTRODUCED, VINCRISTINE SULFATE + 0.9% NS
     Route: 041
  5. RITUXIMAB. [Suspect]
     Active Substance: RITUXIMAB
     Dosage: DOSE RE-INTRODUCED, RITUXIMAB + 5% GS
     Route: 041
  6. 0.9% SODIUM CHLORIDE INJECTION [Suspect]
     Active Substance: SODIUM CHLORIDE
     Indication: MEDICATION DILUTION
     Dosage: ENDOXAN INJECTION (1 GRAM) + 0.9% NS (40 ML)
     Route: 041
     Dates: start: 20190806, end: 20190806
  7. 0.9% SODIUM CHLORIDE INJECTION [Suspect]
     Active Substance: SODIUM CHLORIDE
     Dosage: PIRARUBICIN HYDROCHLORIDE (70 MG) + 0.9% NS (50 ML)
     Route: 041
     Dates: start: 20190806, end: 20190806
  8. 0.9% SODIUM CHLORIDE INJECTION [Suspect]
     Active Substance: SODIUM CHLORIDE
     Dosage: DOSE RE-INTRODUCED, VINCRISTINE SULFATE + 0.9% NS
     Route: 041
  9. 0.9% SODIUM CHLORIDE INJECTION [Suspect]
     Active Substance: SODIUM CHLORIDE
     Dosage: DOSE RE-INTRODUCED, ENDOXAN INJECTION + 0.9% NS
     Route: 041
  10. PIRARUBICIN HYDROCHLORIDE [Suspect]
     Active Substance: PIRARUBICIN HYDROCHLORIDE
     Indication: B-CELL LYMPHOMA STAGE IV
     Dosage: PIRARUBICIN HYDROCHLORIDE (70 MG) + 0.9% NS (50 ML)
     Route: 041
     Dates: start: 20190806, end: 20190806
  11. ENDOXAN [Suspect]
     Active Substance: CYCLOPHOSPHAMIDE
     Indication: B-CELL LYMPHOMA STAGE IV
     Dosage: ENDOXAN INJECTION (1 GRAM) + 0.9% NS (40 ML)
     Route: 041
     Dates: start: 20190806, end: 20190806
  12. 0.9% SODIUM CHLORIDE INJECTION [Suspect]
     Active Substance: SODIUM CHLORIDE
     Dosage: VINCRISTINE SULFATE (2 MG) + 0.9% NS (40 ML)
     Route: 041
     Dates: start: 20190806, end: 20190806
  13. 5% GLUCOSE  INJECTION [Suspect]
     Active Substance: DEXTROSE
     Dosage: DOSE RE-INTRODUCED, RITUXIMAB + 5% GLUCOSE (GS)
     Route: 041
  14. RITUXIMAB. [Suspect]
     Active Substance: RITUXIMAB
     Indication: B-CELL LYMPHOMA STAGE IV
     Dosage: RITUXIMAB (500 MG) + 5% GS (600 ML)
     Route: 041
     Dates: start: 20190805, end: 20190805
  15. 5% GLUCOSE  INJECTION [Suspect]
     Active Substance: DEXTROSE
     Indication: MEDICATION DILUTION
     Dosage: RITUXIMAB (500 MG) + 5% GLUCOSE (GS) (600 ML)
     Route: 041
     Dates: start: 20190805, end: 20190805
  16. VINCRISTINE SULFATE. [Suspect]
     Active Substance: VINCRISTINE SULFATE
     Indication: B-CELL LYMPHOMA STAGE IV
     Dosage: VINCRISTINE SULFATE (2 MG) + 0.9% NS (40 ML)
     Route: 041
     Dates: start: 20190806, end: 20190806

REACTIONS (2)
  - Leukopenia [Recovered/Resolved]
  - Neutropenia [Recovered/Resolved]

NARRATIVE: CASE EVENT DATE: 20190813
